FAERS Safety Report 21212901 (Version 1)
Quarter: 2022Q3

REPORT INFORMATION
  Report Type: Spontaneous
  Country: US (occurrence: None)
  Receive Date: 20220815
  Receipt Date: 20220815
  Transmission Date: 20221027
  Serious: Yes (Other)
  Sender: FDA-Public Use
  Company Number: None

PATIENT
  Age: 43 Year
  Sex: Female
  Weight: 69.75 kg

DRUGS (12)
  1. PAXLOVID [Suspect]
     Active Substance: NIRMATRELVIR\RITONAVIR
     Dosage: FREQUENCY : EVERY 12 HOURS;?
     Route: 048
  2. TRAZODONE [Concomitant]
     Active Substance: TRAZODONE HYDROCHLORIDE
  3. VALIUM [Concomitant]
     Active Substance: DIAZEPAM
  4. FLONASE [Concomitant]
     Active Substance: FLUTICASONE PROPIONATE
  5. Acetamephin/Oxycodone [Concomitant]
  6. Crreon [Concomitant]
  7. ROBAXIN [Concomitant]
     Active Substance: METHOCARBAMOL
  8. POTASSIUM [Concomitant]
     Active Substance: POTASSIUM
  9. PREDNISONE [Concomitant]
     Active Substance: PREDNISONE
  10. TOPROL XL [Concomitant]
  11. Plaqunili [Concomitant]
  12. PROTONIX [Concomitant]
     Active Substance: PANTOPRAZOLE SODIUM

REACTIONS (3)
  - Gingival pain [None]
  - Gingival erythema [None]
  - Oral mucosal exfoliation [None]

NARRATIVE: CASE EVENT DATE: 20220809
